FAERS Safety Report 4481027-0 (Version None)
Quarter: 2004Q3

REPORT INFORMATION
  Report Type: 
  Country: None (occurrence: None)
  Receive Date: 20040923
  Receipt Date: 20040715
  Transmission Date: 20050211
  Serious: No
  Sender: FDA-Public Use
  Company Number: USA030843311

PATIENT
  Age: 78 Year
  Sex: Female
  Weight: 63 kg

DRUGS (7)
  1. FORTEO [Suspect]
     Indication: OSTEOPOROSIS
     Dosage: 20 UG/DAY
     Dates: start: 20030731, end: 20030828
  2. PROGESTERONE [Concomitant]
  3. OSCAL (CALCIUM CARBONATE) [Concomitant]
  4. MULTI-VITAMIN [Concomitant]
  5. VITAMIN E [Concomitant]
  6. FISH OIL [Concomitant]
  7. HYDROCHLOROTHIAZIDE [Concomitant]

REACTIONS (7)
  - BONE PAIN [None]
  - FEELING ABNORMAL [None]
  - HEADACHE [None]
  - INJECTION SITE ERYTHEMA [None]
  - INJECTION SITE PAIN [None]
  - MENTAL IMPAIRMENT [None]
  - MUSCLE CRAMP [None]
